FAERS Safety Report 4378457-4 (Version None)
Quarter: 2004Q2

REPORT INFORMATION
  Report Type: 
  Country: None (occurrence: None)
  Receive Date: 20040609
  Receipt Date: 20030814
  Transmission Date: 20050107
  Serious: Yes (Hospitalization, Other)
  Sender: FDA-Public Use
  Company Number: 2003-05-0284

PATIENT
  Age: 12 Year
  Sex: Female
  Weight: 43.5453 kg

DRUGS (8)
  1. ALBUTEROL [Suspect]
     Indication: ASTHMA
     Dosage: SEE IMAGE
     Route: 055
     Dates: start: 19901001, end: 20030527
  2. BIAXIN [Suspect]
     Indication: SINUSITIS
     Dates: start: 20000501
  3. SINGULAIR [Concomitant]
  4. FLOVENT [Concomitant]
  5. ALLEGRA [Concomitant]
  6. CLARITIN [Concomitant]
  7. AZITHROMYCIN [Concomitant]
  8. SUDAFED (PSEUDOEPHEDRINE HCL) [Concomitant]

REACTIONS (4)
  - CHRONIC SINUSITIS [None]
  - DRUG INEFFECTIVE [None]
  - STATUS ASTHMATICUS [None]
  - STOMACH DISCOMFORT [None]
